FAERS Safety Report 24954959 (Version 3)
Quarter: 2025Q2

REPORT INFORMATION
  Report Type: Report from Study
  Country: JP (occurrence: JP)
  Receive Date: 20250211
  Receipt Date: 20250604
  Transmission Date: 20250716
  Serious: Yes (Other)
  Sender: EXELIXIS
  Company Number: JP-TAKEDA-2024TJP007643

PATIENT
  Age: 65 Year
  Sex: Male
  Weight: 48 kg

DRUGS (16)
  1. CABOMETYX [Suspect]
     Active Substance: CABOZANTINIB S-MALATE
     Indication: Hepatocellular carcinoma
     Route: 048
     Dates: start: 20231023, end: 20231106
  2. CABOMETYX [Suspect]
     Active Substance: CABOZANTINIB S-MALATE
     Route: 048
     Dates: start: 20231107, end: 20231110
  3. CABOMETYX [Suspect]
     Active Substance: CABOZANTINIB S-MALATE
     Route: 048
     Dates: start: 20231114, end: 20231218
  4. CABOMETYX [Suspect]
     Active Substance: CABOZANTINIB S-MALATE
     Route: 048
     Dates: start: 20231227, end: 20240207
  5. CABOMETYX [Suspect]
     Active Substance: CABOZANTINIB S-MALATE
     Route: 048
     Dates: start: 20240208, end: 20240302
  6. CABOMETYX [Suspect]
     Active Substance: CABOZANTINIB S-MALATE
     Route: 048
     Dates: start: 20240314, end: 20240407
  7. CABOMETYX [Suspect]
     Active Substance: CABOZANTINIB S-MALATE
     Route: 048
     Dates: start: 20240416, end: 20240421
  8. CABOMETYX [Suspect]
     Active Substance: CABOZANTINIB S-MALATE
     Route: 048
     Dates: start: 20240430
  9. VONOPRAZAN FUMARATE [Concomitant]
     Active Substance: VONOPRAZAN FUMARATE
     Indication: Hepatocellular carcinoma
     Route: 065
     Dates: start: 20231212
  10. AMINO ACIDS, SOURCE UNSPECIFIED [Concomitant]
     Active Substance: AMINO ACIDS, SOURCE UNSPECIFIED
     Indication: Hepatocellular carcinoma
     Route: 065
     Dates: start: 20240222
  11. UNSPECIFIED INGREDIENT [Concomitant]
     Active Substance: UNSPECIFIED INGREDIENT
     Indication: Hepatocellular carcinoma
     Route: 065
     Dates: start: 20231013
  12. LEVOCARNITINE [Concomitant]
     Active Substance: LEVOCARNITINE
     Indication: Hepatocellular carcinoma
     Route: 065
     Dates: start: 20231013
  13. DECADRON [Concomitant]
     Active Substance: DEXAMETHASONE
     Indication: Hepatocellular carcinoma
     Route: 065
     Dates: start: 20231029
  14. URSODIOL [Concomitant]
     Active Substance: URSODIOL
     Indication: Hepatocellular carcinoma
     Route: 065
     Dates: start: 20231212
  15. OLMESARTAN [Concomitant]
     Active Substance: OLMESARTAN
     Indication: Hepatocellular carcinoma
     Route: 065
     Dates: start: 20231107
  16. NAPROXEN SODIUM [Concomitant]
     Active Substance: NAPROXEN SODIUM
     Indication: Hepatocellular carcinoma
     Route: 065
     Dates: start: 20231020

REACTIONS (4)
  - Rhabdomyolysis [Recovered/Resolved]
  - Neutrophil count decreased [Recovering/Resolving]
  - Palmar-plantar erythrodysaesthesia syndrome [Recovered/Resolved]
  - Hepatic function abnormal [Recovered/Resolved]

NARRATIVE: CASE EVENT DATE: 20231107
